FAERS Safety Report 14170316 (Version 2)
Quarter: 2017Q4

REPORT INFORMATION
  Report Type: Spontaneous
  Country: AU (occurrence: AU)
  Receive Date: 20171108
  Receipt Date: 20171227
  Transmission Date: 20180321
  Serious: Yes (Other)
  Sender: FDA-Public Use
  Company Number: AU-MYLANLABS-2017M1066817

PATIENT
  Age: 57 Year
  Sex: Female

DRUGS (3)
  1. MIRTAZAPINE. [Suspect]
     Active Substance: MIRTAZAPINE
     Indication: INSOMNIA
  2. SERETIDE [Concomitant]
     Active Substance: FLUTICASONE PROPIONATE\SALMETEROL XINAFOATE
     Indication: ASTHMA
     Dosage: 2 DF, BID (2 INHALATIONS, TWICE DAILY MDI 250/25)
  3. MIRTAZAPINE. [Suspect]
     Active Substance: MIRTAZAPINE
     Indication: DEPRESSION
     Dosage: 1 DF, UNK
     Dates: start: 20171014, end: 20171014

REACTIONS (33)
  - Dizziness [Recovering/Resolving]
  - Anxiety [Unknown]
  - Myalgia [Recovering/Resolving]
  - Haemorrhoids [Recovering/Resolving]
  - Somnolence [Recovering/Resolving]
  - Thirst [Recovering/Resolving]
  - Lethargy [Recovering/Resolving]
  - Headache [Recovering/Resolving]
  - Binge eating [Recovering/Resolving]
  - Hallucination [Recovering/Resolving]
  - Disorientation [Recovering/Resolving]
  - Vomiting [Recovering/Resolving]
  - Back pain [Recovering/Resolving]
  - Weight increased [Recovering/Resolving]
  - Confusional state [Recovering/Resolving]
  - Feeling abnormal [Recovering/Resolving]
  - Loss of personal independence in daily activities [Recovering/Resolving]
  - Agitation [Recovering/Resolving]
  - Self-injurious ideation [Recovering/Resolving]
  - Balance disorder [Recovering/Resolving]
  - Clumsiness [Recovering/Resolving]
  - Asthenia [Recovering/Resolving]
  - Aggression [Recovering/Resolving]
  - Disturbance in attention [Recovered/Resolved]
  - Muscle spasms [Recovering/Resolving]
  - Nightmare [Recovering/Resolving]
  - Dry mouth [Recovering/Resolving]
  - Restlessness [Recovering/Resolving]
  - Depressed mood [Not Recovered/Not Resolved]
  - Diarrhoea [Recovering/Resolving]
  - Nausea [Recovering/Resolving]
  - Hyperhidrosis [Recovering/Resolving]
  - Memory impairment [Not Recovered/Not Resolved]

NARRATIVE: CASE EVENT DATE: 20171014
